FAERS Safety Report 23889064 (Version 1)
Quarter: 2024Q2

REPORT INFORMATION
  Report Type: Spontaneous
  Country: GB (occurrence: GB)
  Receive Date: 20240523
  Receipt Date: 20240523
  Transmission Date: 20240715
  Serious: Yes (Other)
  Sender: FDA-Public Use
  Company Number: None

PATIENT
  Age: 5 Year
  Sex: Female
  Weight: 18 kg

DRUGS (3)
  1. MONTELUKAST [Suspect]
     Active Substance: MONTELUKAST SODIUM
     Dosage: FOR CHILDREN {6 - AT NIGHT,
     Route: 065
     Dates: start: 20240430
  2. SERETIDE [Concomitant]
     Active Substance: FLUTICASONE PROPIONATE\SALMETEROL XINAFOATE
     Dates: start: 20230808
  3. ALBUTEROL [Concomitant]
     Active Substance: ALBUTEROL
     Dosage: TIME INTERVAL: AS NECESSARY: INHALE ONE OR TWO PUFFS WHEN REQUIRED (PLEASE R...
     Route: 055
     Dates: start: 20230426

REACTIONS (4)
  - Sleep disorder [Recovered/Resolved]
  - Contusion [Unknown]
  - Poor quality sleep [Unknown]
  - Agitation [Unknown]

NARRATIVE: CASE EVENT DATE: 20240430
